FAERS Safety Report 8602013-2 (Version None)
Quarter: 2012Q3

REPORT INFORMATION
  Report Type: 
  Country: None (occurrence: None)
  Receive Date: 20120817
  Receipt Date: 20120808
  Transmission Date: 20120928
  Serious: Yes (Hospitalization, Other)
  Sender: FDA-Public Use
  Company Number: JP-UCBSA-025447

PATIENT
  Age: 47 Year
  Sex: Female

DRUGS (18)
  1. PREDNISOLONE [Suspect]
     Indication: RHEUMATOID ARTHRITIS
     Dosage: DAILY DOSE: 5MG
     Route: 048
     Dates: start: 20041126
  2. RHEUMATREX [Suspect]
     Indication: RHEUMATOID ARTHRITIS
     Route: 048
     Dates: start: 20090118
  3. RHEUMATREX [Suspect]
     Route: 048
     Dates: start: 20110116
  4. CERTOLIZUMAB PEGOL [Suspect]
     Dosage: STUDY: CDP870-71
     Route: 058
     Dates: start: 20110201, end: 20111206
  5. CERTOLIZUMAB PEGOL [Suspect]
     Dosage: STUDY: CDP870-41
     Route: 058
  6. OMEPRAZOLE [Concomitant]
     Dosage: DAILY DOSE: 20 MG
     Dates: start: 20100409
  7. AMLODIPINE BESYLATE [Concomitant]
     Dosage: DAILY DOSE: 10 MG
     Dates: start: 20100428
  8. CERTOLIZUMAB PEGOL [Suspect]
     Dosage: STUDY: CDP870-41, NBR OF DOSES: 3
     Route: 058
  9. OMEPRAZOLE [Concomitant]
     Dosage: DAILY DOSE: 20 MG
     Dates: start: 20111014
  10. OLMESARTAN MEDOXOMIL [Concomitant]
     Dosage: DAILY DOSE: 20 MG
     Dates: start: 20100428
  11. OLMESARTAN MEDOXOMIL [Concomitant]
     Dosage: DAILY DOSE: 20 MG
     Dates: start: 20100719
  12. CERTOLIZUMAB PEGOL [Suspect]
     Indication: RHEUMATOID ARTHRITIS
     Route: 058
     Dates: start: 20111220
  13. LOXOPROFEN SODIUM [Concomitant]
     Dates: start: 19980427
  14. AMLODIPINE BESYLATE [Concomitant]
     Dosage: DAILY DOSE: 10 MG
     Dates: start: 20120316
  15. PREDNISOLONE [Suspect]
     Dosage: DAILY DOSE: 3 MG
     Route: 048
     Dates: start: 20120217
  16. FERROUS FUMARATE [Concomitant]
     Dates: start: 20100629
  17. CERTOLIZUMAB PEGOL [Suspect]
     Dosage: STUDY: CDP870-71
     Route: 058
     Dates: start: 20100708, end: 20101221
  18. REBAMIPIDE [Concomitant]
     Dates: start: 19980427

REACTIONS (2)
  - CELLULITIS [None]
  - TENDON RUPTURE [None]
